FAERS Safety Report 9714362 (Version 1)
Quarter: 2013Q4

REPORT INFORMATION
  Report Type: Spontaneous
  Country: TW (occurrence: None)
  Receive Date: 20131122
  Receipt Date: 20131122
  Transmission Date: 20140711
  Serious: Yes (Death, Hospitalization)
  Sender: FDA-Public Use
  Company Number: 2013-TW-003384

PATIENT
  Age: 47 Year
  Sex: Male

DRUGS (3)
  1. CLOZAPINE [Suspect]
     Dosage: 25 MG, QD, ORAL
     Route: 048
  2. AMISULPRIDE (AMISULPRIDE) [Suspect]
     Dosage: 800 MG, QD, ORAL
     Route: 048
  3. VALPROIC ACID (VALPROIC ACID) [Suspect]
     Dosage: 1200 MG, QD, ORAL
     Route: 048

REACTIONS (4)
  - Intestinal infarction [None]
  - Sepsis [None]
  - Colitis ischaemic [None]
  - Mesenteric arterial occlusion [None]
